FAERS Safety Report 14602100 (Version 3)
Quarter: 2018Q3

REPORT INFORMATION
  Report Type: Spontaneous
  Country: FR (occurrence: FR)
  Receive Date: 20180306
  Receipt Date: 20180710
  Transmission Date: 20181010
  Serious: Yes (Hospitalization)
  Sender: FDA-Public Use
  Company Number: FR-ROCHE-2082111

PATIENT
  Age: 80 Year
  Sex: Male

DRUGS (14)
  1. GAZYVARO [Suspect]
     Active Substance: OBINUTUZUMAB
     Dosage: CYCLE 2 DAY 1
     Route: 065
     Dates: start: 20170816
  2. GAZYVARO [Suspect]
     Active Substance: OBINUTUZUMAB
     Dosage: CYCLE 3 DAY 1
     Route: 065
     Dates: start: 20170919
  3. GAZYVARO [Suspect]
     Active Substance: OBINUTUZUMAB
     Dosage: CYCLE 4 DAY 1?LAST INJECTION
     Route: 065
     Dates: start: 20171011
  4. PARACETAMOL [Concomitant]
     Active Substance: ACETAMINOPHEN
  5. GAZYVARO [Suspect]
     Active Substance: OBINUTUZUMAB
     Indication: CHRONIC LYMPHOCYTIC LEUKAEMIA
     Dosage: DAY 1
     Route: 041
     Dates: start: 20170718, end: 20171011
  6. CHLORAMINOPHENE [Suspect]
     Active Substance: CHLORAMBUCIL
     Indication: CHRONIC LYMPHOCYTIC LEUKAEMIA
     Route: 048
     Dates: start: 20170718, end: 20171011
  7. ZELITREX [Concomitant]
     Active Substance: VALACYCLOVIR HYDROCHLORIDE
     Indication: PROPHYLAXIS
     Dosage: 1 TABLET DAILY
     Route: 048
     Dates: start: 201707
  8. PLAVIX [Concomitant]
     Active Substance: CLOPIDOGREL BISULFATE
  9. BACTRIM [Concomitant]
     Active Substance: SULFAMETHOXAZOLE\TRIMETHOPRIM
     Indication: PROPHYLAXIS
     Dosage: 1 TABLET 3 TIMES DAILY
     Route: 048
     Dates: start: 201707
  10. BACTRIM [Concomitant]
     Active Substance: SULFAMETHOXAZOLE\TRIMETHOPRIM
     Indication: OPPORTUNISTIC INFECTION
  11. ZELITREX [Concomitant]
     Active Substance: VALACYCLOVIR HYDROCHLORIDE
     Indication: OPPORTUNISTIC INFECTION
  12. GAZYVARO [Suspect]
     Active Substance: OBINUTUZUMAB
     Dosage: DAY 8
     Route: 065
     Dates: start: 20170725
  13. GAZYVARO [Suspect]
     Active Substance: OBINUTUZUMAB
     Dosage: DAY 15
     Route: 065
     Dates: start: 20170802
  14. BINOCRIT [Suspect]
     Active Substance: ERYTHROPOIETIN
     Indication: ANAEMIA
     Dosage: 20000 UI
     Route: 042
     Dates: end: 20171001

REACTIONS (3)
  - Fatigue [Unknown]
  - Diarrhoea [Unknown]
  - Eosinophilia [Recovered/Resolved]

NARRATIVE: CASE EVENT DATE: 20171106
